FAERS Safety Report 8954359 (Version 2)
Quarter: 2013Q2

REPORT INFORMATION
  Report Type: Spontaneous
  Country: US (occurrence: US)
  Receive Date: 20121210
  Receipt Date: 20130528
  Transmission Date: 20140414
  Serious: Yes (Other)
  Sender: FDA-Public Use
  Company Number: US-AMGEN-USASP2012078080

PATIENT
  Age: 81 Year
  Sex: Female
  Weight: 40.91 kg

DRUGS (2)
  1. PROLIA [Suspect]
     Indication: OSTEOPOROSIS POSTMENOPAUSAL
     Dosage: UNK
     Dates: start: 2011
  2. PROLIA [Suspect]

REACTIONS (11)
  - Post procedural haemorrhage [Unknown]
  - Gastrointestinal stoma complication [Unknown]
  - Abdominal pain [Recovering/Resolving]
  - Blood cholesterol increased [Unknown]
  - Skin disorder [Unknown]
  - Malaise [Recovering/Resolving]
  - Mobility decreased [Unknown]
  - Eating disorder [Unknown]
  - Constipation [Unknown]
  - Back pain [Unknown]
  - Pain in extremity [Recovering/Resolving]
